FAERS Safety Report 7779764-5 (Version None)
Quarter: 2011Q3

REPORT INFORMATION
  Report Type: 
  Country: None (occurrence: None)
  Receive Date: 20110927
  Receipt Date: 20110922
  Transmission Date: 20111222
  Serious: Yes (Hospitalization, Other)
  Sender: FDA-Public Use
  Company Number: US-SHIRE-ALL1-2011-03555

PATIENT
  Age: 14 Year
  Sex: Female

DRUGS (3)
  1. INTUNIV [Suspect]
     Indication: PRODUCT USED FOR UNKNOWN INDICATION
     Dosage: 26 MG, ONE DOSE (TOOK 26- 1 MG TABLETS )
     Route: 048
     Dates: start: 20110901, end: 20110901
  2. INTUNIV [Suspect]
     Dosage: 1 MG, 1X/DAY:QD
     Route: 048
  3. WELLBUTRIN SR [Suspect]
     Indication: PRODUCT USED FOR UNKNOWN INDICATION
     Dosage: 3900 MG, ONE DOSE (TOOK 26 -150 MG TABLETS)
     Route: 048
     Dates: start: 20110901, end: 20110901

REACTIONS (4)
  - INTENTIONAL OVERDOSE [None]
  - HALLUCINATION [None]
  - SOMNOLENCE [None]
  - SUICIDE ATTEMPT [None]
